FAERS Safety Report 12084703 (Version 1)
Quarter: 2016Q1

REPORT INFORMATION
  Report Type: Spontaneous
  Country: US (occurrence: US)
  Receive Date: 20160217
  Receipt Date: 20160217
  Transmission Date: 20160526
  Serious: No
  Sender: FDA-Public Use
  Company Number: GXBR2015US001249

PATIENT
  Age: 13 Year
  Sex: Female
  Weight: 43.54 kg

DRUGS (1)
  1. FLUOCINONIDE. [Suspect]
     Active Substance: FLUOCINONIDE
     Indication: ECZEMA
     Dosage: UNK DF, UNK
     Route: 061
     Dates: start: 201405, end: 201405

REACTIONS (1)
  - Skin burning sensation [Recovered/Resolved]
